FAERS Safety Report 24696813 (Version 3)
Quarter: 2024Q4

REPORT INFORMATION
  Report Type: Report from Study
  Country: FR (occurrence: FR)
  Receive Date: 20241204
  Receipt Date: 20241230
  Transmission Date: 20250115
  Serious: Yes (Death, Hospitalization, Other)
  Sender: ABBVIE
  Company Number: FR-ABBVIE-6030293

PATIENT
  Age: 73 Year
  Sex: Female

DRUGS (18)
  1. FOSCARBIDOPA\FOSLEVODOPA [Suspect]
     Active Substance: FOSCARBIDOPA\FOSLEVODOPA
     Indication: Parkinson^s disease
     Dosage: 240 MG/ML + 12 MG/ML, SOLUTION POUR PERFUSION
     Route: 058
     Dates: start: 20241127
  2. APOMORPHINE [Concomitant]
     Active Substance: APOMORPHINE
     Indication: Product used for unknown indication
     Dosage: PUMP
     Dates: start: 2017, end: 2017
  3. APOMORPHINE [Concomitant]
     Active Substance: APOMORPHINE
     Indication: Product used for unknown indication
     Dosage: DOSE INCREASED
     Dates: start: 2018
  4. APOMORPHINE [Concomitant]
     Active Substance: APOMORPHINE
     Indication: Product used for unknown indication
     Dosage: DECREASED DOSE. LED DOSE: 1600 MG/DAY. FLOW RATES: 4 MG/H DAY AND 2 MG/H NIGHT (LEDD: 800 MG).
     Dates: start: 2019, end: 202411
  5. APOMORPHINE [Concomitant]
     Active Substance: APOMORPHINE
     Indication: Product used for unknown indication
     Dosage: FLOW RATE: 7 MG/H DURING THE DAY AND 5 MG/H AT NIGHT
     Dates: start: 20241119, end: 20241129
  6. AMANTADINE [Concomitant]
     Active Substance: AMANTADINE
     Indication: Product used for unknown indication
     Dosage: 1 CAPSULE MORNING AND 2 CAPSULES NOON
  7. CLOZAPINE [Concomitant]
     Active Substance: CLOZAPINE
     Indication: Product used for unknown indication
     Dosage: 2 TABLETS IN THE EVENING
  8. ALPRAZOLAM [Concomitant]
     Active Substance: ALPRAZOLAM
     Indication: Product used for unknown indication
     Dosage: 1 TABLET X3/DAY
  9. HYDROXYZINE [Concomitant]
     Active Substance: HYDROXYZINE HYDROCHLORIDE
     Indication: Product used for unknown indication
     Dosage: 25 MG: 1 TABLET IN THE EVENING
  10. MELATONIN [Concomitant]
     Active Substance: MELATONIN
     Indication: Product used for unknown indication
     Dosage: 1.5:2 PC AT BEDTIME
  11. LANSOPRAZOLE [Concomitant]
     Active Substance: LANSOPRAZOLE
     Indication: Product used for unknown indication
     Dosage: 15 MG: 1 TABLET AT BEDTIME
  12. POLYETHYLENE GLYCOLS [Concomitant]
     Active Substance: POLYETHYLENE GLYCOLS
     Indication: Product used for unknown indication
     Dosage: 2 BAGS/DAY
  13. Calcidose [Concomitant]
     Indication: Product used for unknown indication
     Dosage: 500:1 BAG X2/DAY
  14. CHOLECALCIFEROL [Concomitant]
     Active Substance: CHOLECALCIFEROL
     Indication: Product used for unknown indication
     Dosage: 100,000 IU. 1 AMP/MONTH
  15. ACETAMINOPHEN [Concomitant]
     Active Substance: ACETAMINOPHEN
     Indication: Product used for unknown indication
  16. ACUPAN [Concomitant]
     Active Substance: NEFOPAM HYDROCHLORIDE
     Indication: Product used for unknown indication
     Dosage: 1 AMP 2/DAY
  17. FLECTOR [Concomitant]
     Active Substance: DICLOFENAC EPOLAMINE
     Indication: Product used for unknown indication
     Dosage: GEL
  18. HAWTHORN LEAF WITH FLOWER\QUININE [Concomitant]
     Active Substance: HAWTHORN LEAF WITH FLOWER\QUININE
     Indication: Product used for unknown indication
     Dosage: 2 TABLETS IN THE EVENING (NOT TAKEN REGULARLY)

REACTIONS (24)
  - Cardiac arrest [Fatal]
  - Urinary tract infection [Fatal]
  - Dehydration [Unknown]
  - Hypernatraemia [Fatal]
  - Acute kidney injury [Fatal]
  - Hypercreatininaemia [Fatal]
  - Hyperkalaemia [Fatal]
  - Hyperleukocytosis [Unknown]
  - Escherichia test positive [Unknown]
  - Cardio-respiratory arrest [Fatal]
  - Pyrexia [Unknown]
  - Hyperhidrosis [Unknown]
  - Tachycardia [Unknown]
  - Malaise [Unknown]
  - Back pain [Unknown]
  - Pallor [Unknown]
  - Parkinson^s disease [Unknown]
  - Loss of personal independence in daily activities [Unknown]
  - Gait disturbance [Unknown]
  - Decreased activity [Unknown]
  - Unresponsive to stimuli [Unknown]
  - Mydriasis [Fatal]
  - Disease risk factor [Unknown]
  - Dyskinesia [Unknown]

NARRATIVE: CASE EVENT DATE: 20240101
